FAERS Safety Report 7130566-2 (Version None)
Quarter: 2010Q4

REPORT INFORMATION
  Report Type: 
  Country: None (occurrence: None)
  Receive Date: 20101029
  Receipt Date: 20100506
  Transmission Date: 20110411
  Serious: No
  Sender: FDA-Public Use
  Company Number: US-002029

PATIENT
  Sex: Male
  Weight: 64.0025 kg

DRUGS (1)
  1. DEGARELIX 240 MG [Suspect]
     Indication: PROSTATE CANCER
     Dosage: (240 MG SUBCUTANEOUS), (80 MG  SUBCUTANEOUS)

REACTIONS (1)
  - INJECTION SITE DISCOMFORT [None]
